FAERS Safety Report 22034390 (Version 2)
Quarter: 2023Q1

REPORT INFORMATION
  Report Type: Spontaneous
  Country: FR (occurrence: FR)
  Receive Date: 20230224
  Receipt Date: 20230327
  Transmission Date: 20230418
  Serious: Yes (Other)
  Sender: FDA-Public Use
  Company Number: FR-PFIZER INC-PV202300033957

PATIENT
  Sex: Female

DRUGS (1)
  1. DINOPROSTONE [Suspect]
     Active Substance: DINOPROSTONE
     Indication: Labour stimulation
     Dosage: 2 MG, SINGLE
     Route: 067
     Dates: start: 20221018

REACTIONS (2)
  - Off label use [Unknown]
  - Uterine hypertonus [Unknown]

NARRATIVE: CASE EVENT DATE: 20221018
